FAERS Safety Report 17401260 (Version 2)
Quarter: 2020Q1

REPORT INFORMATION
  Report Type: Spontaneous
  Country: DE (occurrence: DE)
  Receive Date: 20200211
  Receipt Date: 20200213
  Transmission Date: 20200409
  Serious: No
  Sender: FDA-Public Use
  Company Number: NVSC2020DE032467

PATIENT
  Sex: Female

DRUGS (1)
  1. METHOTREXATE. [Suspect]
     Active Substance: METHOTREXATE
     Indication: ECTOPIC PREGNANCY
     Dosage: UNK
     Route: 065
     Dates: start: 20190809, end: 20190816

REACTIONS (2)
  - Product use in unapproved indication [Unknown]
  - Tremor [Not Recovered/Not Resolved]
